FAERS Safety Report 5819361-1 (Version None)
Quarter: 2008Q3

REPORT INFORMATION
  Report Type: 
  Country: None (occurrence: None)
  Receive Date: 20080718
  Receipt Date: 20080702
  Transmission Date: 20090109
  Serious: Yes (Other)
  Sender: FDA-Public Use
  Company Number: 1000000016

PATIENT
  Sex: Female
  Weight: 49 kg

DRUGS (4)
  1. CITALOPRAM (CITALOPRAM HYDROBROMIDE) (20 MILLIGRAM, TABLETS) [Suspect]
     Indication: ANXIETY
     Dosage: 20 MG, ORAL
     Route: 048
     Dates: start: 20051201, end: 20080609
  2. CITALOPRAM (CITALOPRAM HYDROBROMIDE) (20 MILLIGRAM, TABLETS) [Suspect]
     Indication: DEPRESSION
     Dosage: 20 MG, ORAL
     Route: 048
     Dates: start: 20051201, end: 20080609
  3. ZOPICLONE (3.75 MILLIGRAM) [Concomitant]
  4. LEVOTHYROXINE (75 MILLIGRAM) [Concomitant]

REACTIONS (1)
  - CONTUSION [None]
